FAERS Safety Report 7718089-0 (Version None)
Quarter: 2011Q3

REPORT INFORMATION
  Report Type: 
  Country: None (occurrence: None)
  Receive Date: 20110830
  Receipt Date: 20110822
  Transmission Date: 20111222
  Serious: Yes (Hospitalization)
  Sender: FDA-Public Use
  Company Number: US-JNJFOC-20110611428

PATIENT
  Sex: Female
  Weight: 98.88 kg

DRUGS (8)
  1. REMICADE [Suspect]
     Indication: RHEUMATOID ARTHRITIS
     Route: 042
     Dates: start: 20110505, end: 20110616
  2. FOLIC ACID [Concomitant]
  3. VITAMIN D [Concomitant]
  4. TRAMADOL HCL [Concomitant]
  5. PREVACID [Concomitant]
  6. CALCIUM CARBONATE [Concomitant]
  7. REMICADE [Suspect]
     Route: 042
     Dates: start: 20100701, end: 20101116
  8. ZOFRAN [Concomitant]

REACTIONS (7)
  - WHEEZING [None]
  - DYSPNOEA [None]
  - SWELLING FACE [None]
  - GASTRIC DISORDER [None]
  - PRURITUS [None]
  - ULCER [None]
  - INFUSION RELATED REACTION [None]
